FAERS Safety Report 22387081 (Version 4)
Quarter: 2024Q2

REPORT INFORMATION
  Report Type: Spontaneous
  Country: IT (occurrence: None)
  Receive Date: 20230531
  Receipt Date: 20240506
  Transmission Date: 20240715
  Serious: Yes (Other)
  Sender: FDA-Public Use
  Company Number: IT-ROCHE-3355227

PATIENT
  Age: 0 Year
  Sex: Female

DRUGS (1)
  1. OCREVUS [Suspect]
     Active Substance: OCRELIZUMAB
     Indication: Product used for unknown indication
     Route: 064
     Dates: start: 20181106, end: 20220105

REACTIONS (5)
  - Congenital arterial malformation [Unknown]
  - COVID-19 [Recovered/Resolved]
  - White blood cell count abnormal [Unknown]
  - Foetal exposure during pregnancy [Unknown]
  - Heart disease congenital [Unknown]

NARRATIVE: CASE EVENT DATE: 20221101
